FAERS Safety Report 25024121 (Version 3)
Quarter: 2025Q1

REPORT INFORMATION
  Report Type: Spontaneous
  Country: IT (occurrence: IT)
  Receive Date: 20250228
  Receipt Date: 20250310
  Transmission Date: 20250409
  Serious: Yes (Other)
  Sender: MYLAN
  Company Number: IT-BRISTOL-MYERS SQUIBB COMPANY-2025-017835

PATIENT
  Age: 67 Year
  Sex: Male

DRUGS (7)
  1. LENALIDOMIDE [Suspect]
     Active Substance: LENALIDOMIDE
     Indication: High-grade B-cell lymphoma
  2. LENALIDOMIDE [Suspect]
     Active Substance: LENALIDOMIDE
     Indication: B-cell lymphoma stage IV
  3. DEXAMETHASONE [Suspect]
     Active Substance: DEXAMETHASONE
     Indication: B-cell lymphoma stage IV
  4. RITUXIMAB [Suspect]
     Active Substance: RITUXIMAB
     Indication: B-cell lymphoma stage IV
  5. CYTARABINE [Suspect]
     Active Substance: CYTARABINE
     Indication: B-cell lymphoma stage IV
  6. OXALIPLATIN [Suspect]
     Active Substance: OXALIPLATIN
     Indication: B-cell lymphoma stage IV
  7. EPCORITAMAB [Concomitant]
     Active Substance: EPCORITAMAB
     Indication: High-grade B-cell lymphoma

REACTIONS (4)
  - Neutropenia [Unknown]
  - Lymphopenia [Unknown]
  - Drug ineffective [Unknown]
  - Off label use [Unknown]
